FAERS Safety Report 11057553 (Version 1)
Quarter: 2015Q2

REPORT INFORMATION
  Report Type: Spontaneous
  Country: US (occurrence: US)
  Receive Date: 20150422
  Receipt Date: 20150422
  Transmission Date: 20150821
  Serious: Yes (Life-Threatening, Hospitalization)
  Sender: FDA-Public Use
  Company Number: PHHY2015US046200

PATIENT
  Age: 30 Year
  Sex: Male

DRUGS (2)
  1. VANCOMYCIN [Suspect]
     Active Substance: VANCOMYCIN
     Indication: SICKLE CELL ANAEMIA
     Route: 041
  2. VANCOMYCIN [Suspect]
     Active Substance: VANCOMYCIN
     Indication: CHEST PAIN

REACTIONS (13)
  - Cerebral ischaemia [Unknown]
  - Pruritus [Unknown]
  - Hypotension [Unknown]
  - Mydriasis [Unknown]
  - Red man syndrome [Unknown]
  - Hyperhidrosis [Unknown]
  - Myocardial ischaemia [Unknown]
  - Erythema [Unknown]
  - Angioedema [Unknown]
  - Rash [Unknown]
  - Respiratory distress [Unknown]
  - Retinal artery occlusion [Unknown]
  - Blindness [Unknown]
